FAERS Safety Report 24209706 (Version 1)
Quarter: 2024Q3

REPORT INFORMATION
  Report Type: Spontaneous
  Country: US (occurrence: US)
  Receive Date: 20240814
  Receipt Date: 20240814
  Transmission Date: 20241017
  Serious: No
  Sender: BAUSCH AND LOMB
  Company Number: US-BAUSCH-BL-2024-012249

PATIENT
  Sex: Male

DRUGS (1)
  1. ARAZLO [Suspect]
     Active Substance: TAZAROTENE
     Indication: Product used for unknown indication
     Route: 065

REACTIONS (1)
  - Application site exfoliation [Unknown]
